FAERS Safety Report 8164273-4 (Version None)
Quarter: 2012Q1

REPORT INFORMATION
  Report Type: 
  Country: None (occurrence: None)
  Receive Date: 20120224
  Receipt Date: 20120109
  Transmission Date: 20120608
  Serious: No
  Sender: FDA-Public Use
  Company Number: US-ASTRAZENECA-2012SE02065

PATIENT
  Age: 26 Year
  Sex: Female
  Weight: 95.3 kg

DRUGS (1)
  1. VIMOVO [Suspect]
     Indication: ABDOMINAL PAIN
     Dosage: 500 MG / 20 MG, TWO TIMES A DAY
     Route: 048

REACTIONS (3)
  - OFF LABEL USE [None]
  - URTICARIA [None]
  - SWELLING [None]
